FAERS Safety Report 22072219 (Version 1)
Quarter: 2023Q1

REPORT INFORMATION
  Report Type: Spontaneous
  Country: US (occurrence: US)
  Receive Date: 20230308
  Receipt Date: 20230308
  Transmission Date: 20230418
  Serious: No
  Sender: FDA-Public Use
  Company Number: US-drreddys-SPO/USA/23/0160054

PATIENT
  Age: 74 Year
  Sex: Male

DRUGS (21)
  1. LENALIDOMIDE [Suspect]
     Active Substance: LENALIDOMIDE
     Indication: Plasma cell myeloma
     Dosage: TAKE 1 CAPSULE BY MOUTH DAILY FOR 14 DAYS ON FOLLOWED BY 14 DAYS OFF OF A 28 DAY CYCLE. TAKE WHOLE W
     Route: 048
     Dates: start: 20190222
  2. LENALIDOMIDE [Suspect]
     Active Substance: LENALIDOMIDE
     Dosage: TAKE 1 CAPSULE BY MOUTH DAILY FOR 14 DAYS ON FOLLOWED BY 14 DAYS OFF OF A 28 DAY CYCLE. TAKE WHOLE W
     Route: 048
     Dates: start: 20221209
  3. TRAMADOL HCL TAB 50MG [Concomitant]
     Indication: Product used for unknown indication
  4. B1 TAB 100MG [Concomitant]
     Indication: Product used for unknown indication
  5. B12 SUB 5000MCG [Concomitant]
     Indication: Product used for unknown indication
  6. B6 NATURAL TAB 100MG [Concomitant]
     Indication: Product used for unknown indication
  7. FOLIC ACID TAB 800MCG [Concomitant]
     Indication: Product used for unknown indication
  8. MAGNESIUM OX TAB 500MG [Concomitant]
     Indication: Product used for unknown indication
  9. MAGNESIUM OX TAB 500MG [Concomitant]
  10. POTASSIUM TAB 99MG [Concomitant]
     Indication: Product used for unknown indication
  11. POTASSIUM TAB 99MG [Concomitant]
  12. PROTONIX TBE 40MG [Concomitant]
     Indication: Product used for unknown indication
  13. PROTONIX TBE 40MG [Concomitant]
  14. CALCITRIOL [Concomitant]
     Active Substance: CALCITRIOL
     Indication: Product used for unknown indication
  15. CALCITRIOL [Concomitant]
     Active Substance: CALCITRIOL
  16. MECLIZINE HYDROCHLORIDE [Concomitant]
     Active Substance: MECLIZINE HYDROCHLORIDE
     Indication: Product used for unknown indication
  17. MECLIZINE HYDROCHLORIDE [Concomitant]
     Active Substance: MECLIZINE HYDROCHLORIDE
  18. VITAMIN D3 [Concomitant]
     Active Substance: CHOLECALCIFEROL
     Indication: Product used for unknown indication
  19. VITAMIN D3 [Concomitant]
     Active Substance: CHOLECALCIFEROL
  20. EPCLUSA [Concomitant]
     Active Substance: SOFOSBUVIR\VELPATASVIR
     Indication: Product used for unknown indication
  21. EPCLUSA [Concomitant]
     Active Substance: SOFOSBUVIR\VELPATASVIR

REACTIONS (4)
  - Dyspepsia [Not Recovered/Not Resolved]
  - Dysuria [Not Recovered/Not Resolved]
  - Feeding disorder [Not Recovered/Not Resolved]
  - Product use issue [Unknown]
